FAERS Safety Report 6693333-X (Version None)
Quarter: 2010Q2

REPORT INFORMATION
  Report Type: 
  Country: None (occurrence: None)
  Receive Date: 20100420
  Receipt Date: 20100407
  Transmission Date: 20101027
  Serious: Yes (Hospitalization)
  Sender: FDA-Public Use
  Company Number: 231875J09USA

PATIENT
  Age: 46 Year
  Sex: Female

DRUGS (5)
  1. REBIF [Suspect]
     Indication: MULTIPLE SCLEROSIS
     Dosage: 44 MCG, 3 IN1 WK, SUBCUTANEOUS; 3 IN 1, SUBCUTANEOUS; 8.8 MCG, 3 IN 1 WK, SUBCUTANEOUS
     Route: 058
     Dates: start: 20090101, end: 20091001
  2. REBIF [Suspect]
     Indication: MULTIPLE SCLEROSIS
     Dosage: 44 MCG, 3 IN1 WK, SUBCUTANEOUS; 3 IN 1, SUBCUTANEOUS; 8.8 MCG, 3 IN 1 WK, SUBCUTANEOUS
     Route: 058
     Dates: start: 20090622, end: 20091001
  3. REBIF [Suspect]
     Indication: MULTIPLE SCLEROSIS
     Dosage: 44 MCG, 3 IN1 WK, SUBCUTANEOUS; 3 IN 1, SUBCUTANEOUS; 8.8 MCG, 3 IN 1 WK, SUBCUTANEOUS
     Route: 058
     Dates: start: 20100317
  4. UNSPECIFIED MEDICATIONS (ALL OTHER THERAPEUTIC PRODUCTS) [Concomitant]
  5. MIRALAX [Concomitant]

REACTIONS (10)
  - ABDOMINAL DISTENSION [None]
  - CONVULSION [None]
  - DYSPNOEA [None]
  - FAECALOMA [None]
  - FALL [None]
  - GASTROINTESTINAL INFECTION [None]
  - INJECTION SITE ERYTHEMA [None]
  - INJECTION SITE HAEMATOMA [None]
  - STOMATITIS [None]
  - WEIGHT INCREASED [None]
